FAERS Safety Report 17455169 (Version 1)
Quarter: 2020Q1

REPORT INFORMATION
  Report Type: Spontaneous
  Country: BR (occurrence: BR)
  Receive Date: 20200225
  Receipt Date: 20200225
  Transmission Date: 20200409
  Serious: Yes (Other)
  Sender: FDA-Public Use
  Company Number: BR-ROCHE-2555934

PATIENT
  Sex: Male

DRUGS (1)
  1. MABTHERA [Suspect]
     Active Substance: RITUXIMAB
     Indication: SKIN CANCER
     Route: 065

REACTIONS (4)
  - Leukaemia [Not Recovered/Not Resolved]
  - Headache [Unknown]
  - Intentional product use issue [Unknown]
  - Off label use [Unknown]
